FAERS Safety Report 13794334 (Version 5)
Quarter: 2025Q1

REPORT INFORMATION
  Report Type: Spontaneous
  Country: US (occurrence: US)
  Receive Date: 20170726
  Receipt Date: 20250313
  Transmission Date: 20250409
  Serious: Yes (Other)
  Sender: PFIZER
  Company Number: US-PFIZER INC-2017323982

PATIENT
  Age: 63 Year
  Sex: Male

DRUGS (1)
  1. XELJANZ [Suspect]
     Active Substance: TOFACITINIB CITRATE

REACTIONS (10)
  - Fall [Recovering/Resolving]
  - Subdural haematoma [Recovering/Resolving]
  - Contusion [Unknown]
  - Dyspnoea [Unknown]
  - Fatigue [Unknown]
  - Pain in extremity [Unknown]
  - Oedema peripheral [Unknown]
  - Synovitis [Unknown]
  - Arthritis [Unknown]
  - Exercise tolerance decreased [Unknown]
